FAERS Safety Report 15093043 (Version 2)
Quarter: 2020Q1

REPORT INFORMATION
  Report Type: Spontaneous
  Country: IE (occurrence: IE)
  Receive Date: 20180629
  Receipt Date: 20200317
  Transmission Date: 20200409
  Serious: Yes (Life-Threatening, Hospitalization, Other)
  Sender: FDA-Public Use
  Company Number: IE-TEVA-2018-IE-916543

PATIENT
  Age: 44 Year
  Sex: Female
  Weight: 67 kg

DRUGS (10)
  1. LEVOTHYROXINE (G) [Concomitant]
  2. DOXYCYCLINE (GENERIC) [Concomitant]
  3. LITHIUM (GENERIC) [Suspect]
     Active Substance: LITHIUM
     Indication: SCHIZOPHRENIA
     Dosage: 1000 MILLIGRAM DAILY; 1000MG DAILY
     Route: 065
  4. VENLAFAXINE (GENERIC) [Suspect]
     Active Substance: VENLAFAXINE HYDROCHLORIDE
     Indication: SCHIZOPHRENIA
     Dosage: 300 MILLIGRAM DAILY; 300MG DAILY
     Route: 048
  5. FLUPENTHIXOL (GENERIC) [Concomitant]
  6. CARBIMAZOLE (GENERIC) [Concomitant]
  7. AMISULPRIDE (G) [Concomitant]
  8. QUETIAPINE (G) [Suspect]
     Active Substance: QUETIAPINE
     Indication: SCHIZOPHRENIA
     Dosage: 400 MILLIGRAM DAILY; 400MG DAILY
     Route: 048
  9. PARACETAMOL [Suspect]
     Active Substance: ACETAMINOPHEN
     Indication: PAIN
     Route: 048
  10. CENTYL K 2.5MG/573 MG MODIFIED-RELEASE TABLETS. [Concomitant]
     Dosage: 1

REACTIONS (3)
  - Liver transplant [Not Recovered/Not Resolved]
  - Intentional overdose [Not Recovered/Not Resolved]
  - Hepatic failure [Not Recovered/Not Resolved]

NARRATIVE: CASE EVENT DATE: 20180405
